FAERS Safety Report 21985694 (Version 1)
Quarter: 2023Q1

REPORT INFORMATION
  Report Type: Spontaneous
  Country: CN (occurrence: None)
  Receive Date: 20230213
  Receipt Date: 20230213
  Transmission Date: 20230417
  Serious: Yes (Life-Threatening)
  Sender: FDA-Public Use
  Company Number: CN-ROCHE-3234041

PATIENT
  Age: 62 Year
  Sex: Female
  Weight: 60 kg

DRUGS (15)
  1. XELODA [Suspect]
     Active Substance: CAPECITABINE
     Indication: Invasive breast carcinoma
     Dosage: TXH REGIMEN FOR 6 CYCLES
     Route: 048
     Dates: start: 20180810
  2. XELODA [Suspect]
     Active Substance: CAPECITABINE
     Dosage: LAPATINIB + CAPECITABINE
     Route: 048
     Dates: start: 201905, end: 202002
  3. XELODA [Suspect]
     Active Substance: CAPECITABINE
     Dosage: PYRROTINIB MALEATE TABLETS + CAPECITABINE
     Route: 048
     Dates: start: 202005
  4. HERCEPTIN [Suspect]
     Active Substance: TRASTUZUMAB
     Indication: Invasive breast carcinoma
     Dosage: TXH REGIMEN FOR 6 CYCLES, FIRST DOSE 8 MG/KG AND FOLLOWED DOSE 6 MG/KG
     Route: 065
     Dates: start: 20180810, end: 201905
  5. HERCEPTIN [Suspect]
     Active Substance: TRASTUZUMAB
     Dosage: HP REGIMEN +DENOSUMAB
     Route: 065
     Dates: start: 20230131
  6. KADCYLA [Suspect]
     Active Substance: ADO-TRASTUZUMAB EMTANSINE
     Indication: Invasive breast carcinoma
     Route: 041
     Dates: start: 20220609
  7. PERTUZUMAB [Suspect]
     Active Substance: PERTUZUMAB
     Indication: Invasive breast carcinoma
     Dosage: HP REGIMEN + DENOSUMAB
     Route: 065
     Dates: start: 20230131
  8. EPIRUBICIN [Concomitant]
     Active Substance: EPIRUBICIN
     Indication: Invasive breast carcinoma
  9. CYCLOPHOSPHAMIDE [Concomitant]
     Active Substance: CYCLOPHOSPHAMIDE
     Indication: Invasive breast carcinoma
  10. DOCETAXEL [Concomitant]
     Active Substance: DOCETAXEL
     Indication: Invasive breast carcinoma
  11. DOCETAXEL [Concomitant]
     Active Substance: DOCETAXEL
     Dosage: TXH REGIMEN FOR 6 CYCLES
     Dates: start: 20180810
  12. LAPATINIB [Concomitant]
     Active Substance: LAPATINIB
     Indication: Invasive breast carcinoma
     Route: 048
     Dates: start: 201905, end: 202002
  13. PACLITAXEL [Concomitant]
     Active Substance: PACLITAXEL
     Indication: Invasive breast carcinoma
     Dates: start: 202104, end: 202108
  14. INVESTIGATIONAL PRODUCT [Concomitant]
     Active Substance: INVESTIGATIONAL PRODUCT
     Indication: Invasive breast carcinoma
     Dosage: FIRST DOSE 8 MG/KG AND FOLLOWED DOSE 6 MG/KG
     Dates: start: 202104, end: 202108
  15. DENOSUMAB [Concomitant]
     Active Substance: DENOSUMAB
     Dates: start: 20230131

REACTIONS (7)
  - Diarrhoea [Unknown]
  - Platelet count decreased [Unknown]
  - Anaemia [Recovering/Resolving]
  - Coma [Recovering/Resolving]
  - Gastrointestinal haemorrhage [Recovered/Resolved]
  - Epistaxis [Unknown]
  - Full blood count abnormal [Unknown]

NARRATIVE: CASE EVENT DATE: 20220101
